FAERS Safety Report 4331461-4 (Version None)
Quarter: 2004Q1

REPORT INFORMATION
  Report Type: 
  Country: None (occurrence: None)
  Receive Date: 20040329
  Receipt Date: 20040318
  Transmission Date: 20041129
  Serious: Yes (Hospitalization)
  Sender: FDA-Public Use
  Company Number: US-JNJFOC-20040304601

PATIENT
  Age: 67 Year
  Sex: Male

DRUGS (6)
  1. RISPERDAL [Suspect]
     Indication: DRUG USE FOR UNKNOWN INDICATION
  2. AGGRENOX [Suspect]
     Indication: PROPHYLAXIS
     Dosage: 2 IN 1 DAY, ORAL
     Route: 048
     Dates: start: 20030101
  3. DEPAKOTE [Suspect]
     Indication: DRUG USE FOR UNKNOWN INDICATION
  4. PRILOSEC [Concomitant]
  5. ZOLOFT [Concomitant]
  6. AVANDIA [Concomitant]

REACTIONS (4)
  - ANAEMIA [None]
  - DIABETIC ULCER [None]
  - TOE AMPUTATION [None]
  - TREMOR [None]
